FAERS Safety Report 6430467-9 (Version None)
Quarter: 2009Q4

REPORT INFORMATION
  Report Type: 
  Country: None (occurrence: None)
  Receive Date: 20091106
  Receipt Date: 20091101
  Transmission Date: 20100525
  Serious: Yes (Life-Threatening, Other)
  Sender: FDA-Public Use
  Company Number: US-ELI_LILLY_AND_COMPANY-US200911000720

PATIENT
  Age: 68 Year
  Sex: Male

DRUGS (1)
  1. BYETTA [Suspect]
     Dosage: 5 UG, UNKNOWN
     Dates: start: 20081001, end: 20081001

REACTIONS (3)
  - ANAPHYLACTIC SHOCK [None]
  - ANGIOEDEMA [None]
  - VENTRICULAR TACHYCARDIA [None]
